FAERS Safety Report 5122930-8 (Version None)
Quarter: 2006Q4

REPORT INFORMATION
  Report Type: 
  Country: None (occurrence: None)
  Receive Date: 20061005
  Receipt Date: 20061005
  Transmission Date: 20070319
  Serious: No
  Sender: FDA-Public Use
  Company Number: None

PATIENT
  Age: 81 Year
  Sex: Male

DRUGS (1)
  1. LEVAQUIN [Suspect]
     Indication: UROSEPSIS
     Dosage: 500 MG X 1 IV DRIP
     Route: 042
     Dates: start: 20060909, end: 20060909

REACTIONS (3)
  - INFUSION SITE PRURITUS [None]
  - INFUSION SITE RASH [None]
  - INFUSION SITE REACTION [None]
